FAERS Safety Report 7816557-4 (Version None)
Quarter: 2011Q4

REPORT INFORMATION
  Report Type: 
  Country: None (occurrence: None)
  Receive Date: 20111017
  Receipt Date: 20111012
  Transmission Date: 20120403
  Serious: Yes (Hospitalization)
  Sender: FDA-Public Use
  Company Number: FI-PFIZER INC-2011157790

PATIENT
  Age: 47 Year
  Sex: Female
  Weight: 59 kg

DRUGS (4)
  1. DIFORMIN RETARD [Concomitant]
     Indication: DIABETES MELLITUS
     Dosage: UNK
     Route: 048
  2. THYROXIN [Concomitant]
     Indication: HYPOTHYROIDISM
     Dosage: UNK
     Route: 048
  3. RAMIPRIL [Concomitant]
     Indication: HYPERTENSION
     Dosage: UNK
     Route: 048
  4. SUTENT [Suspect]
     Indication: RENAL CELL CARCINOMA
     Dosage: 37.5 MG 1X/DAY 4 WEEKS/2 WEEKS PAUSE
     Route: 048
     Dates: start: 20101124, end: 20110706

REACTIONS (1)
  - GASTRIC ULCER [None]
